FAERS Safety Report 17985148 (Version 5)
Quarter: 2020Q4

REPORT INFORMATION
  Report Type: Spontaneous
  Country: CZ (occurrence: CZ)
  Receive Date: 20200706
  Receipt Date: 20201014
  Transmission Date: 20210113
  Serious: Yes (Disabling, Other)
  Sender: FDA-Public Use
  Company Number: CZ-MYLANLABS-2020M1047120

PATIENT
  Age: 44 Year
  Sex: Male

DRUGS (6)
  1. ESCITALOPRAM [Suspect]
     Active Substance: ESCITALOPRAM OXALATE
     Dosage: 20 MILLIGRAM, QD
     Route: 048
     Dates: start: 2019, end: 2019
  2. VALDOXAN [Concomitant]
     Active Substance: AGOMELATINE
     Dosage: 50 MILLIGRAM
  3. VALDOXAN [Concomitant]
     Active Substance: AGOMELATINE
     Dosage: 25 MILLIGRAM
  4. ESCITALOPRAM [Suspect]
     Active Substance: ESCITALOPRAM OXALATE
     Indication: DEPRESSION
     Dosage: 10 MILLIGRAM DAILY;
     Route: 048
     Dates: start: 2019, end: 2019
  5. ZOLPIDEM [Suspect]
     Active Substance: ZOLPIDEM TARTRATE
     Indication: DEPRESSION
     Dosage: UNK
     Route: 048
  6. ZOLPIDEM [Suspect]
     Active Substance: ZOLPIDEM TARTRATE
     Dosage: UNK
     Route: 048

REACTIONS (14)
  - Anxiety [Unknown]
  - Decreased interest [Recovered/Resolved]
  - Condition aggravated [Recovered/Resolved]
  - Therapeutic product effect incomplete [Recovered/Resolved]
  - Disturbance in attention [Recovering/Resolving]
  - Anhedonia [Recovering/Resolving]
  - Mood altered [Recovered/Resolved]
  - Asthenia [Recovering/Resolving]
  - Drug ineffective [Recovered/Resolved]
  - Decreased immune responsiveness [Unknown]
  - Sleep disorder [Recovering/Resolving]
  - Sexual dysfunction [Recovered/Resolved]
  - Abdominal distension [Unknown]
  - Tension [Recovering/Resolving]

NARRATIVE: CASE EVENT DATE: 2018
